FAERS Safety Report 4521608-9 (Version None)
Quarter: 2004Q4

REPORT INFORMATION
  Report Type: 
  Country: None (occurrence: None)
  Receive Date: 20041209
  Receipt Date: 20041126
  Transmission Date: 20050328
  Serious: Yes (Other)
  Sender: FDA-Public Use
  Company Number: GB-JNJFOC-20041106530

PATIENT
  Sex: Female
  Weight: 65 kg

DRUGS (6)
  1. REMICADE [Suspect]
     Indication: RHEUMATOID ARTHRITIS
     Route: 042
  2. LEFLUNOMIDE [Concomitant]
  3. DICLOFENAC [Concomitant]
  4. PREDNISOLONE [Concomitant]
  5. CO-PROXAMOL [Concomitant]
  6. CO-PROXAMOL [Concomitant]

REACTIONS (1)
  - BASAL CELL CARCINOMA [None]
